FAERS Safety Report 6444959-X (Version None)
Quarter: 2009Q4

REPORT INFORMATION
  Report Type: 
  Country: None (occurrence: None)
  Receive Date: 20091118
  Receipt Date: 20091106
  Transmission Date: 20100525
  Serious: Yes (Other)
  Sender: FDA-Public Use
  Company Number: JP-PFIZER INC-2007108233

PATIENT
  Age: 75 Year
  Sex: Female

DRUGS (1)
  1. HALCION [Suspect]
     Dosage: 0.25 MG, 1X/DAY
     Route: 048

REACTIONS (4)
  - DRUG INEFFECTIVE [None]
  - GASTRIC CANCER [None]
  - SOMNOLENCE [None]
  - THIRST [None]
